FAERS Safety Report 14361951 (Version 2)
Quarter: 2018Q1

REPORT INFORMATION
  Report Type: Spontaneous
  Country: US (occurrence: US)
  Receive Date: 20180108
  Receipt Date: 20180313
  Transmission Date: 20180509
  Serious: No
  Sender: FDA-Public Use
  Company Number: US-ASTRAZENECA-2018SE01974

PATIENT
  Age: 978 Month
  Sex: Female
  Weight: 68 kg

DRUGS (1)
  1. SYMBICORT [Suspect]
     Active Substance: BUDESONIDE\FORMOTEROL FUMARATE DIHYDRATE
     Indication: ASTHMA
     Dosage: 160/4.5 MCG, 2 PUFFS TWICE PER DAY
     Route: 055

REACTIONS (7)
  - Device use issue [Unknown]
  - Off label use [Unknown]
  - Upper limb fracture [Not Recovered/Not Resolved]
  - Device malfunction [Unknown]
  - Anxiety [Unknown]
  - Underdose [Unknown]
  - Fall [Unknown]

NARRATIVE: CASE EVENT DATE: 201712
